FAERS Safety Report 16824642 (Version 1)
Quarter: 2019Q3

REPORT INFORMATION
  Report Type: Spontaneous
  Country: FR (occurrence: FR)
  Receive Date: 20190918
  Receipt Date: 20190918
  Transmission Date: 20191005
  Serious: Yes (Hospitalization)
  Sender: FDA-Public Use
  Company Number: FR-EPIHEALTH-2019-FR-000203

PATIENT
  Age: 17 Year
  Sex: Male
  Weight: 79 kg

DRUGS (5)
  1. ACYCLOVIR (NON-SPECIFIC) [Suspect]
     Active Substance: ACYCLOVIR
     Indication: PROPHYLAXIS
     Route: 065
  2. TERCIAN 40 MG/ML, SOLUTION BUVABLE ENGOUTTES [Suspect]
     Active Substance: CYAMEMAZINE
     Dosage: 50 MILLIGRAM [50 MILLIGRAM EVERY 1 DAY(S)
     Route: 048
     Dates: start: 20190808, end: 20190829
  3. ROCEPHINE (CEFTRIAXONE DISODIUM SALT,HEMIHEPTAHYDRATE, CEFTRIAXONE SOD [Suspect]
     Active Substance: CEFTRIAXONE SODIUM
     Dosage: 2 GRAM [2 GRAM EVERY 1 DAY(S)
     Route: 042
  4. AMOXICILLINE [Suspect]
     Active Substance: AMOXICILLIN
     Route: 065
  5. RISPERDAL [Suspect]
     Active Substance: RISPERIDONE
     Dosage: 2 MILLIGRAM [2 MILLIGRAM EVERY 1 DAY(S)
     Route: 048
     Dates: start: 20190821, end: 20190829

REACTIONS (1)
  - Hepatocellular injury [Not Recovered/Not Resolved]

NARRATIVE: CASE EVENT DATE: 20190823
